FAERS Safety Report 6979587-0 (Version None)
Quarter: 2010Q3

REPORT INFORMATION
  Report Type: 
  Country: None (occurrence: None)
  Receive Date: 20100910
  Receipt Date: 20100910
  Transmission Date: 20110219
  Serious: No
  Sender: FDA-Public Use
  Company Number: None

PATIENT
  Sex: Female
  Weight: 72.1219 kg

DRUGS (1)
  1. MICROGESTIN 1/20 [Suspect]
     Indication: CONTRACEPTION
     Dates: start: 20100423, end: 20100905

REACTIONS (1)
  - PREGNANCY ON ORAL CONTRACEPTIVE [None]
